FAERS Safety Report 10750427 (Version 7)
Quarter: 2015Q2

REPORT INFORMATION
  Report Type: Spontaneous
  Country: JP (occurrence: JP)
  Receive Date: 20150130
  Receipt Date: 20150501
  Transmission Date: 20150821
  Serious: Yes (Hospitalization)
  Sender: FDA-Public Use
  Company Number: JP-009507513-1501JPN010713

PATIENT
  Sex: Female

DRUGS (9)
  1. ACARBOSE. [Concomitant]
     Active Substance: ACARBOSE
     Dosage: DAILY DOSE UNKNOWN
     Route: 048
  2. BISOPROLOL FUMARATE. [Concomitant]
     Active Substance: BISOPROLOL FUMARATE
     Dosage: DAILY DOSE UNKNOWN
     Route: 048
  3. AMITRIPTYLINE HYDROCHLORIDE. [Concomitant]
     Active Substance: AMITRIPTYLINE HYDROCHLORIDE
     Dosage: DAILY DOSE UNKNOWN
     Route: 048
  4. GLYBURIDE. [Suspect]
     Active Substance: GLYBURIDE
     Dosage: DAILY DOSE UNKNOWN
     Route: 048
  5. LANSOPRAZOLE. [Concomitant]
     Active Substance: LANSOPRAZOLE
     Dosage: DAILY DOSE UNKNOWN
     Route: 048
  6. MAGNESIUM OXIDE. [Concomitant]
     Active Substance: MAGNESIUM OXIDE
     Dosage: DAILY DOSE UNKNOWN
     Route: 048
  7. ASPIRIN. [Concomitant]
     Active Substance: ASPIRIN
     Dosage: DAILY DOSE UNKNOWN
     Route: 048
  8. DIGOXIN. [Concomitant]
     Active Substance: DIGOXIN
     Dosage: DAILY DOSE UNKNOWN
     Route: 048
  9. JANUVIA [Suspect]
     Active Substance: SITAGLIPTIN PHOSPHATE
     Indication: TYPE 2 DIABETES MELLITUS
     Dosage: DAILY DOSE UNKNOWN
     Route: 048

REACTIONS (1)
  - Hypoglycaemia [Recovered/Resolved]
